FAERS Safety Report 25223914 (Version 1)
Quarter: 2025Q2

REPORT INFORMATION
  Report Type: Spontaneous
  Country: CN (occurrence: CN)
  Receive Date: 20250422
  Receipt Date: 20250422
  Transmission Date: 20250716
  Serious: Yes (Other)
  Sender: BAXTER
  Company Number: None

PATIENT
  Age: 4 Year
  Sex: Male
  Weight: 15.8 kg

DRUGS (7)
  1. CYCLOPHOSPHAMIDE [Suspect]
     Active Substance: CYCLOPHOSPHAMIDE
     Indication: Acute lymphocytic leukaemia
     Dosage: 0.134000 G, BID (Q12H, IVGTT)
     Route: 041
     Dates: start: 20250328, end: 20250330
  2. CYTARABINE [Suspect]
     Active Substance: CYTARABINE
     Indication: Acute lymphocytic leukaemia
     Dosage: 1.340000 G, BID (Q12H, IVGTT)
     Route: 041
     Dates: start: 20250330, end: 20250331
  3. PEGASPARGASE [Suspect]
     Active Substance: PEGASPARGASE
     Indication: Acute lymphocytic leukaemia
     Dosage: 2.230000 ML, QD
     Route: 030
     Dates: start: 20250401, end: 20250401
  4. VINCRISTINE SULFATE [Suspect]
     Active Substance: VINCRISTINE SULFATE
     Indication: Acute lymphocytic leukaemia
     Dosage: 1.000000 ML, QD
     Route: 042
     Dates: start: 20250401, end: 20250401
  5. SODIUM CHLORIDE [Suspect]
     Active Substance: SODIUM CHLORIDE
     Indication: Medication dilution
     Dosage: 100.0000 ML, BID, APPROVAL NUMBER: H12020024
     Route: 041
     Dates: start: 20250328, end: 20250330
  6. SODIUM CHLORIDE [Suspect]
     Active Substance: SODIUM CHLORIDE
     Dosage: 3.000000 ML, QD, APPROVAL NUMBER: H20043271
     Route: 030
     Dates: start: 20250401, end: 20250401
  7. DEXTROSE [Suspect]
     Active Substance: DEXTROSE MONOHYDRATE
     Indication: Medication dilution
     Dosage: 250.0000 ML, BID
     Route: 041
     Dates: start: 20250330, end: 20250331

REACTIONS (1)
  - Hypertriglyceridaemia [Unknown]

NARRATIVE: CASE EVENT DATE: 20250401
